FAERS Safety Report 11688823 (Version 1)
Quarter: 2015Q4

REPORT INFORMATION
  Report Type: Spontaneous
  Country: US (occurrence: US)
  Receive Date: 20151102
  Receipt Date: 20151102
  Transmission Date: 20160304
  Serious: Yes (Death)
  Sender: FDA-Public Use
  Company Number: PHHY2015US131290

PATIENT
  Age: 77 Year
  Sex: Female

DRUGS (2)
  1. MEKINIST [Suspect]
     Active Substance: TRAMETINIB DIMETHYL SULFOXIDE
     Dosage: 2 DF, QD (1 MG)
     Route: 048
     Dates: start: 20150825
  2. MEKINIST [Suspect]
     Active Substance: TRAMETINIB DIMETHYL SULFOXIDE
     Indication: MALIGNANT MELANOMA
     Dosage: 2 MG, QD
     Route: 048
     Dates: start: 20150720, end: 20150728

REACTIONS (3)
  - Malignant neoplasm progression [Fatal]
  - Rash [Unknown]
  - Visual impairment [Unknown]

NARRATIVE: CASE EVENT DATE: 20150728
